FAERS Safety Report 21648556 (Version 2)
Quarter: 2022Q4

REPORT INFORMATION
  Report Type: Other
  Country: CH (occurrence: CH)
  Receive Date: 20221128
  Receipt Date: 20221130
  Transmission Date: 20230113
  Serious: Yes (Life-Threatening, Hospitalization, Other)
  Sender: FDA-Public Use
  Company Number: None

PATIENT
  Age: 59 Year
  Sex: Male

DRUGS (56)
  1. AMPHOTERICIN B [Suspect]
     Active Substance: AMPHOTERICIN B
     Indication: Fungal infection
     Dosage: 1 DF, UNKNOWN FREQ. (1 DOSAGE FORM)
     Route: 065
     Dates: start: 20211204, end: 20211209
  2. NOXAFIL [Suspect]
     Active Substance: POSACONAZOLE
     Indication: Product used for unknown indication
     Dosage: 1 DF, UNKNOWN FREQ. (1 DOSAGE FORM)
     Route: 065
     Dates: start: 20211115, end: 20211204
  3. CEFEPIME [Suspect]
     Active Substance: CEFEPIME HYDROCHLORIDE
     Indication: Product used for unknown indication
     Dosage: 1 DF, UNKNOWN FREQ. (1 DOSAGE FORM)
     Route: 065
     Dates: start: 20211109, end: 20211205
  4. VANCOMYCIN [Suspect]
     Active Substance: VANCOMYCIN
     Indication: Product used for unknown indication
     Dosage: 1 DF, UNKNOWN FREQ. (1 DOSAGE FORM)
     Route: 065
     Dates: start: 20211115, end: 20211116
  5. VANCOMYCIN [Suspect]
     Active Substance: VANCOMYCIN
     Dosage: 1 DF, UNKNOWN FREQ. (1 DOSAGE FORM)
     Route: 065
     Dates: start: 20211130, end: 20211206
  6. VANCOMYCIN [Suspect]
     Active Substance: VANCOMYCIN
     Dosage: 1 DF, UNKNOWN FREQ. (1 DOSAGE FORM)
     Route: 065
     Dates: start: 20211220, end: 20211220
  7. MEROPENEM [Suspect]
     Active Substance: MEROPENEM
     Indication: Product used for unknown indication
     Dosage: 1 DF, UNKNOWN FREQ. (1 DOSAGE FORM)
     Route: 065
     Dates: start: 20211115, end: 20211116
  8. MEROPENEM [Suspect]
     Active Substance: MEROPENEM
     Dosage: 1 DF, UNKNOWN FREQ. (1 DOSAGE FORM)
     Route: 065
     Dates: start: 20211205, end: 20211213
  9. MEROPENEM [Suspect]
     Active Substance: MEROPENEM
     Dosage: 1 DF, UNKNOWN FREQ. (1 DOSAGE FORM)
     Route: 065
     Dates: start: 20211220, end: 20211220
  10. ACETAMINOPHEN [Suspect]
     Active Substance: ACETAMINOPHEN
     Indication: Product used for unknown indication
     Dosage: 1 DF, UNKNOWN FREQ. (1 DOSAGE FORM)
     Route: 065
     Dates: start: 20211110, end: 20211209
  11. REMERON [Suspect]
     Active Substance: MIRTAZAPINE
     Indication: Product used for unknown indication
     Dosage: 1 DF, UNKNOWN FREQ. (1 DOSAGE FORM)
     Route: 065
     Dates: start: 20211126, end: 20211208
  12. LORAZEPAM [Suspect]
     Active Substance: LORAZEPAM
     Indication: Product used for unknown indication
     Dosage: 1 DF, UNKNOWN FREQ. (1 DOSAGE FORM)
     Route: 065
     Dates: start: 20211126, end: 20211204
  13. ROCURONIUM BROMIDE [Suspect]
     Active Substance: ROCURONIUM BROMIDE
     Indication: Product used for unknown indication
     Dosage: 1 DF, UNKNOWN FREQ. (1 DOSAGE FORM)
     Route: 065
     Dates: start: 20211116, end: 20211209
  14. METRONIDAZOLE [Suspect]
     Active Substance: METRONIDAZOLE
     Indication: Product used for unknown indication
     Dosage: 1 DF, UNKNOWN FREQ. (1 DOSAGE FORM)
     Route: 065
     Dates: start: 20211110, end: 20211114
  15. METRONIDAZOLE [Suspect]
     Active Substance: METRONIDAZOLE
     Dosage: 1 DF, UNKNOWN FREQ. (1 DOSAGE FORM)
     Route: 065
     Dates: start: 20211121, end: 20211205
  16. DOXYCYCLINE [Concomitant]
     Active Substance: DOXYCYCLINE
     Indication: Product used for unknown indication
     Dosage: 1 DF, UNKNOWN FREQ. (1 DOSAGE FORM)
     Route: 065
     Dates: start: 20211112, end: 20211118
  17. BACTRIM [Concomitant]
     Active Substance: SULFAMETHOXAZOLE\TRIMETHOPRIM
     Indication: Product used for unknown indication
     Dosage: 1 DF, UNKNOWN FREQ. (1 DOSAGE FORM)
     Route: 065
     Dates: start: 20211115, end: 20211220
  18. VALTREX [Concomitant]
     Active Substance: VALACYCLOVIR HYDROCHLORIDE
     Indication: Product used for unknown indication
     Dosage: 1 DF, UNKNOWN FREQ. (1 DOSAGE FORM)
     Route: 065
     Dates: start: 20211110, end: 20211220
  19. CLARITHROMYCIN [Concomitant]
     Active Substance: CLARITHROMYCIN
     Indication: Product used for unknown indication
     Dosage: 1 DF, UNKNOWN FREQ. (1 DOSAGE FORM)
     Route: 065
     Dates: start: 20211109, end: 20211112
  20. SOLU-MEDROL [Concomitant]
     Active Substance: METHYLPREDNISOLONE SODIUM SUCCINATE
     Indication: Product used for unknown indication
     Dosage: 1 DF, UNKNOWN FREQ. (1 DOSAGE FORM)
     Route: 065
     Dates: start: 20211209, end: 20211220
  21. ALUMINUM HYDROXIDE\MAGNESIUM HYDROXIDE [Concomitant]
     Active Substance: ALUMINUM HYDROXIDE\MAGNESIUM HYDROXIDE
     Indication: Product used for unknown indication
     Dosage: 1 DF, UNKNOWN FREQ. (1 DOSAGE FORM)
     Route: 065
     Dates: start: 20211110, end: 20211202
  22. AMLODIPINE BESYLATE [Concomitant]
     Active Substance: AMLODIPINE BESYLATE
     Indication: Product used for unknown indication
     Dosage: 1 DF, UNKNOWN FREQ. (1 DOSAGE FORM)
     Route: 065
     Dates: start: 20211125, end: 20211202
  23. ATROVENT [Concomitant]
     Active Substance: IPRATROPIUM BROMIDE
     Indication: Product used for unknown indication
     Dosage: 1 DF, UNKNOWN FREQ. (1 DOSAGE FORM)
     Route: 065
     Dates: start: 20211114, end: 20211220
  24. THIAMINE HYDROCHLORIDE [Concomitant]
     Active Substance: THIAMINE HYDROCHLORIDE
     Indication: Product used for unknown indication
     Dosage: 1 DF, UNKNOWN FREQ. (1 DOSAGE FORM)
     Route: 065
     Dates: start: 20211212, end: 20211220
  25. CORDARONE [Concomitant]
     Active Substance: AMIODARONE HYDROCHLORIDE
     Indication: Product used for unknown indication
     Dosage: 1 DF, UNKNOWN FREQ. (1 DOSAGE FORM)
     Route: 065
     Dates: start: 20211120, end: 20211220
  26. DEXMEDETOMIDINE HYDROCHLORIDE [Concomitant]
     Active Substance: DEXMEDETOMIDINE HYDROCHLORIDE
     Indication: Product used for unknown indication
     Dosage: 1 DF, UNKNOWN FREQ. (1 DOSAGE FORM)
     Route: 065
     Dates: start: 20211218, end: 20211220
  27. DIGOXIN [Concomitant]
     Active Substance: DIGOXIN
     Indication: Product used for unknown indication
     Dosage: 1 DF, UNKNOWN FREQ. (1 DOSAGE FORM)
     Route: 065
     Dates: start: 20211202, end: 20211203
  28. DIGOXIN [Concomitant]
     Active Substance: DIGOXIN
     Dosage: 1 DF, UNKNOWN FREQ. (1 DOSAGE FORM)
     Route: 065
     Dates: start: 20211216, end: 20211216
  29. Dormicum [Concomitant]
     Indication: Product used for unknown indication
     Dosage: 1 DF, UNKNOWN FREQ. (1 DOSAGE FORM)
     Route: 065
     Dates: start: 20211110, end: 20211216
  30. DUPHALAC [Concomitant]
     Active Substance: LACTULOSE
     Indication: Product used for unknown indication
     Dosage: 1 DF, UNKNOWN FREQ. (1 DOSAGE FORM)
     Route: 065
     Dates: start: 20211211, end: 20211219
  31. FASTURTEC [Concomitant]
     Active Substance: RASBURICASE
     Indication: Product used for unknown indication
     Dosage: 1 DF, UNKNOWN FREQ. (1 DOSAGE FORM)
     Route: 065
     Dates: start: 20211109, end: 20211117
  32. FENTANYL [Concomitant]
     Active Substance: FENTANYL
     Indication: Product used for unknown indication
     Dosage: 1 DF, UNKNOWN FREQ. (1 DOSAGE FORM)
     Route: 065
     Dates: start: 20211116, end: 20211219
  33. HEPARIN [Concomitant]
     Active Substance: HEPARIN SODIUM
     Indication: Product used for unknown indication
     Dosage: 1 DF, UNKNOWN FREQ. (1 DOSAGE FORM)
     Route: 065
     Dates: start: 20211212, end: 20211220
  34. NOVORAPID [Concomitant]
     Active Substance: INSULIN ASPART
     Indication: Product used for unknown indication
     Dosage: 1 DF, UNKNOWN FREQ. (1 DOSAGE FORM)
     Route: 065
     Dates: start: 20211116, end: 20211217
  35. KONAKION [Concomitant]
     Active Substance: PHYTONADIONE
     Indication: Product used for unknown indication
     Dosage: 1 DF, UNKNOWN FREQ. (1 DOSAGE FORM)
     Route: 065
     Dates: start: 20211116, end: 20211220
  36. FUROSEMIDE [Concomitant]
     Active Substance: FUROSEMIDE
     Indication: Product used for unknown indication
     Dosage: 1 DF, UNKNOWN FREQ. (1 DOSAGE FORM)
     Route: 065
     Dates: start: 20211111, end: 20211118
  37. SODIUM PICOSULFATE [Concomitant]
     Active Substance: SODIUM PICOSULFATE
     Indication: Product used for unknown indication
     Dosage: 1 DF, UNKNOWN FREQ. (1 DOSAGE FORM)
     Route: 065
     Dates: start: 20211117, end: 20211119
  38. DOLOPHINE [Concomitant]
     Active Substance: METHADONE HYDROCHLORIDE
     Indication: Product used for unknown indication
     Dosage: 1 DF, UNKNOWN FREQ. (1 DOSAGE FORM)
     Route: 065
     Dates: start: 20211203, end: 20211213
  39. METOCLOPRAMIDE [Concomitant]
     Active Substance: METOCLOPRAMIDE
     Indication: Product used for unknown indication
     Dosage: 1 DF, UNKNOWN FREQ. (1 DOSAGE FORM)
     Route: 065
     Dates: start: 20211111, end: 20211214
  40. METOPROLOL [Concomitant]
     Active Substance: METOPROLOL
     Indication: Product used for unknown indication
     Dosage: 1 DF, UNKNOWN FREQ. (1 DOSAGE FORM)
     Route: 065
     Dates: start: 20211124, end: 20211216
  41. MORPHINE [Concomitant]
     Active Substance: MORPHINE
     Indication: Product used for unknown indication
     Dosage: 1 DF, UNKNOWN FREQ. (1 DOSAGE FORM)
     Route: 065
     Dates: start: 20211011, end: 20211220
  42. NEXIUM [Concomitant]
     Active Substance: ESOMEPRAZOLE MAGNESIUM
     Indication: Product used for unknown indication
     Dosage: 1 DF, UNKNOWN FREQ. (1 DOSAGE FORM)
     Route: 065
     Dates: start: 20211110, end: 20211114
  43. NOREPINEPHRINE\NOREPINEPHRINE BITARTRATE [Concomitant]
     Active Substance: NOREPINEPHRINE\NOREPINEPHRINE BITARTRATE
     Indication: Product used for unknown indication
     Dosage: 1 DF, UNKNOWN FREQ. (1 DOSAGE FORM)
     Route: 065
     Dates: start: 20211115, end: 20211220
  44. METAMIZOLE [Concomitant]
     Active Substance: METAMIZOLE
     Indication: Product used for unknown indication
     Dosage: 1 DF, UNKNOWN FREQ. (1 DOSAGE FORM)
     Route: 065
     Dates: start: 20211112, end: 20211115
  45. OLMESARTAN [Concomitant]
     Active Substance: OLMESARTAN
     Indication: Product used for unknown indication
     Dosage: 1 DF, UNKNOWN FREQ. (1 DOSAGE FORM)
     Route: 065
     Dates: start: 20211110, end: 20211217
  46. ONDANSETRON [Concomitant]
     Active Substance: ONDANSETRON
     Indication: Product used for unknown indication
     Dosage: 1 DF, UNKNOWN FREQ. (1 DOSAGE FORM)
     Route: 065
     Dates: start: 20211110, end: 20211122
  47. PANTOZOL [Concomitant]
     Active Substance: PANTOPRAZOLE SODIUM
     Indication: Product used for unknown indication
     Dosage: 1 DF, UNKNOWN FREQ. (1 DOSAGE FORM)
     Route: 065
     Dates: start: 20211114, end: 20211219
  48. PHOSCAP [Concomitant]
     Indication: Product used for unknown indication
     Dosage: 1 DF, UNKNOWN FREQ. (1 DOSAGE FORM)
     Route: 065
     Dates: start: 20211209, end: 20211210
  49. PROPOFOL [Concomitant]
     Active Substance: PROPOFOL
     Indication: Product used for unknown indication
     Dosage: 1 DF, UNKNOWN FREQ. (1 DOSAGE FORM)
     Route: 065
     Dates: start: 20211116, end: 20211213
  50. RENAGEL [Concomitant]
     Active Substance: SEVELAMER HYDROCHLORIDE
     Indication: Product used for unknown indication
     Dosage: 1 DF, UNKNOWN FREQ. (1 DOSAGE FORM)
     Route: 065
     Dates: start: 20211125, end: 20211201
  51. ALBUTEROL [Concomitant]
     Active Substance: ALBUTEROL
     Indication: Product used for unknown indication
     Dosage: 1 DF, UNKNOWN FREQ. (1 DOSAGE FORM)
     Route: 065
     Dates: start: 20211114, end: 20211220
  52. TRACRIUM [Concomitant]
     Active Substance: ATRACURIUM BESYLATE
     Indication: Product used for unknown indication
     Dosage: 1 DF, UNKNOWN FREQ. (1 DOSAGE FORM)
     Route: 065
     Dates: start: 20211122, end: 20211207
  53. Transipeg [Concomitant]
     Indication: Product used for unknown indication
     Dosage: 1 DF, UNKNOWN FREQ. (1 DOSAGE FORM)
     Route: 065
     Dates: start: 20211116, end: 20211208
  54. URAPIDIL [Concomitant]
     Active Substance: URAPIDIL
     Indication: Product used for unknown indication
     Dosage: 1 DF, UNKNOWN FREQ. (1 DOSAGE FORM)
     Route: 065
     Dates: start: 20211124, end: 20211125
  55. ALLOPURINOL [Concomitant]
     Active Substance: ALLOPURINOL
     Indication: Product used for unknown indication
     Dosage: 1 DF, UNKNOWN FREQ. (1 DOSAGE FORM)
     Route: 065
     Dates: start: 20211110, end: 20211220
  56. XIFAXAN [Concomitant]
     Active Substance: RIFAXIMIN
     Indication: Product used for unknown indication
     Dosage: 1 DF, UNKNOWN FREQ. (1 DOSAGE FORM)
     Route: 065
     Dates: start: 20211211, end: 20211220

REACTIONS (1)
  - Drug-induced liver injury [Not Recovered/Not Resolved]

NARRATIVE: CASE EVENT DATE: 20211208
